FAERS Safety Report 19256343 (Version 1)
Quarter: 2021Q2

REPORT INFORMATION
  Report Type: Spontaneous
  Country: DE (occurrence: DE)
  Receive Date: 20210513
  Receipt Date: 20210513
  Transmission Date: 20210717
  Serious: Yes (Death)
  Sender: FDA-Public Use
  Company Number: DE-CELGENEUS-DEU-20210502605

PATIENT
  Age: 74 Year
  Sex: Male

DRUGS (5)
  1. DARATUMUMAB [Concomitant]
     Active Substance: DARATUMUMAB
     Indication: AMYLOIDOSIS
     Route: 041
  2. DEXAMETHASONE. [Concomitant]
     Active Substance: DEXAMETHASONE
     Indication: AMYLOIDOSIS
     Route: 041
  3. ACETYLSALICYLIC ACID [Concomitant]
     Active Substance: ASPIRIN
     Indication: ANTICOAGULANT THERAPY
     Dosage: 100 MILLIGRAM
     Route: 065
  4. LENALIDOMIDE [Suspect]
     Active Substance: LENALIDOMIDE
     Indication: AMYLOIDOSIS
     Dosage: 5?10 MG (RANGE 2.5 MG EVERY OTHER DAY TO 25 MG/DAY) AND REPEATED EVERY 28 DAYS.
     Route: 048
  5. ACYCLOVIR. [Concomitant]
     Active Substance: ACYCLOVIR
     Indication: PROPHYLAXIS
     Route: 065

REACTIONS (2)
  - Pneumonia [Fatal]
  - Neutropenic sepsis [Fatal]
